FAERS Safety Report 8597967-7 (Version None)
Quarter: 2012Q3

REPORT INFORMATION
  Report Type: 
  Country: None (occurrence: None)
  Receive Date: 20120816
  Receipt Date: 20120807
  Transmission Date: 20120928
  Serious: Yes (Hospitalization)
  Sender: FDA-Public Use
  Company Number: US-BAYER-2012-081275

PATIENT
  Age: 46 Year
  Sex: Female
  Weight: 117.91 kg

DRUGS (4)
  1. YAZ [Suspect]
  2. KETOPROFEN [Concomitant]
     Dosage: 75 MG, TID, AS NEEDED
  3. LORAZEPAM [Concomitant]
     Dosage: 0.5 MG, TAKE 1 TO 2 TABLETS ONE HOUR PRIOR
  4. SCOPOLAMINE [Concomitant]
     Dosage: 1 PATCH 4 HOURS PRIOR, CHANGE PATCH Q (INTERPRETED AS EVERY) 3 DAYS
     Route: 061

REACTIONS (1)
  - PULMONARY EMBOLISM [None]
